FAERS Safety Report 8468209-8 (Version None)
Quarter: 2012Q2

REPORT INFORMATION
  Report Type: 
  Country: None (occurrence: None)
  Receive Date: 20120626
  Receipt Date: 20120619
  Transmission Date: 20120825
  Serious: Yes (Other)
  Sender: FDA-Public Use
  Company Number: BR-PFIZER INC-2012148239

PATIENT
  Age: 85 Year
  Sex: Male
  Weight: 96 kg

DRUGS (6)
  1. SIMVASTATIN [Concomitant]
     Indication: ISCHAEMIC HEART DISEASE PROPHYLAXIS
     Dosage: UNK
  2. SOMALGIN CARDIO [Concomitant]
     Indication: VENOUS OCCLUSION
     Dosage: UNK
     Dates: start: 20030101
  3. ALPRAZOLAM [Suspect]
     Indication: SEDATION
     Dosage: 1 MG, 1X/DAY
     Route: 048
     Dates: start: 20030101
  4. ATENOLOL [Concomitant]
     Indication: ISCHAEMIC HEART DISEASE PROPHYLAXIS
     Dosage: UNK
     Dates: start: 20030101
  5. PLAQ [Concomitant]
     Indication: CAROTID ARTERY OCCLUSION
     Dosage: UNK
     Dates: start: 20110101
  6. ALPRAZOLAM [Suspect]
     Indication: INSOMNIA

REACTIONS (6)
  - CAROTID ARTERY OCCLUSION [None]
  - DRUG DEPENDENCE [None]
  - GENERAL PHYSICAL HEALTH DETERIORATION [None]
  - BLOOD PRESSURE DECREASED [None]
  - DRUG DOSE OMISSION [None]
  - HYPERTENSION [None]
